FAERS Safety Report 13409980 (Version 1)
Quarter: 2017Q2

REPORT INFORMATION
  Report Type: Spontaneous
  Country: US (occurrence: US)
  Receive Date: 20170406
  Receipt Date: 20170406
  Transmission Date: 20170830
  Serious: No
  Sender: FDA-Public Use
  Company Number: US-AMGEN-USASP2017049202

PATIENT

DRUGS (1)
  1. ENBREL [Suspect]
     Active Substance: ETANERCEPT
     Indication: PFAPA SYNDROME
     Dosage: 20 MG, QWK
     Route: 065
     Dates: start: 2017

REACTIONS (2)
  - Incorrect product storage [Unknown]
  - Off label use [Unknown]

NARRATIVE: CASE EVENT DATE: 2017
